FAERS Safety Report 10366620 (Version 1)
Quarter: 2014Q3

REPORT INFORMATION
  Report Type: Spontaneous
  Country: IN (occurrence: None)
  Receive Date: 20140804
  Receipt Date: 20140804
  Transmission Date: 20150326
  Serious: Yes (Hospitalization)
  Sender: FDA-Public Use
  Company Number: FK201403008

PATIENT
  Age: 19 Year
  Sex: Male

DRUGS (8)
  1. OLANZAPINE (OLANZAPINE) [Suspect]
     Active Substance: OLANZAPINE
     Indication: PRODUCT USED FOR UNKNOWN INDICATION
  2. CYPROHEPTADINE (CYPROHEPTADINE) [Concomitant]
  3. ONDANSETRON. [Suspect]
     Active Substance: ONDANSETRON
     Indication: PRODUCT USED FOR UNKNOWN INDICATION
  4. LITHIUM [Suspect]
     Active Substance: LITHIUM CARBONATE
     Indication: PRODUCT USED FOR UNKNOWN INDICATION
  5. CLONAZEPAM (CLONAZEPAM) (CLONAZEPAM) [Suspect]
     Active Substance: CLONAZEPAM
     Indication: PRODUCT USED FOR UNKNOWN INDICATION
  6. RISPERIDONE (RISPERIDONE) [Suspect]
     Active Substance: RISPERIDONE
     Indication: PRODUCT USED FOR UNKNOWN INDICATION
  7. VALPROATE (VALPROATE SODIUM) [Suspect]
     Active Substance: VALPROATE SODIUM
     Indication: PRODUCT USED FOR UNKNOWN INDICATION
  8. ANTIMICROBIAL [Concomitant]
     Active Substance: ALCOHOL\CHLOROXYLENOL\TRICLOSAN

REACTIONS (9)
  - Aggression [None]
  - Hyperreflexia [None]
  - Serotonin syndrome [None]
  - Agitation [None]
  - Diarrhoea [None]
  - Tachycardia [None]
  - Tachypnoea [None]
  - Chills [None]
  - Neuroleptic malignant syndrome [None]
